FAERS Safety Report 5595025-7 (Version None)
Quarter: 2008Q1

REPORT INFORMATION
  Report Type: 
  Country: None (occurrence: None)
  Receive Date: 20080117
  Receipt Date: 20070107
  Transmission Date: 20080703
  Serious: Yes (Other)
  Sender: FDA-Public Use
  Company Number: DE-ASTRAZENECA-2007PK02664

PATIENT
  Age: 276 Month
  Sex: Female
  Weight: 45.7 kg

DRUGS (3)
  1. SEROQUEL [Suspect]
     Dosage: GRADUALLY INCREASING FROM 25 TO 350 MG DAY
     Route: 048
     Dates: start: 20071016
  2. BELARA [Concomitant]
     Indication: CONTRACEPTION
     Dosage: 1 TABLET/DAY
     Route: 048
  3. MOVICOL [Concomitant]
     Dosage: 1 SACCHET EVERY SECOND DAY

REACTIONS (1)
  - OBSESSIVE-COMPULSIVE PERSONALITY DISORDER [None]
